FAERS Safety Report 13463349 (Version 1)
Quarter: 2017Q2

REPORT INFORMATION
  Report Type: Spontaneous
  Country: None (occurrence: US)
  Receive Date: 20170420
  Receipt Date: 20170420
  Transmission Date: 20170830
  Serious: No
  Sender: FDA-Public Use
  Company Number: US-GREER LABORATORIES, INC.-1065603

PATIENT
  Age: 8 Year
  Weight: 26.9 kg

DRUGS (11)
  1. STANDARDIZED CAT HAIR [Suspect]
     Active Substance: FELIS CATUS HAIR
     Route: 058
  2. POLLENS - TREES, GS MAPLE MIX [Suspect]
     Active Substance: ACER RUBRUM POLLEN\ACER SACCHARINUM POLLEN\ACER SACCHARUM POLLEN
     Route: 058
  3. ALBUTEROL HFA [Concomitant]
     Active Substance: ALBUTEROL SULFATE
     Route: 048
  4. CETIRIZINE HCL [Concomitant]
     Active Substance: CETIRIZINE HYDROCHLORIDE
     Route: 048
  5. MOLDS, RUSTS AND SMUTS, GS NEW STOCK FUNGI MIX [Suspect]
     Active Substance: ALTERNARIA ALTERN\ASPERGILLUS NIGER V\AUREOBASIDIUM PULLULANS VAR. P\BOTRYTIS CINE\CANDIDA ALB\CHAETOMIUM GLOB\CLADOSPORIUM SPHAEROSPERM\COCHLIOBOLUS SATIV\EPICOCCUM NIG\GIBBERELLA FUJIK\MUCOR PLUMB\PENICILLIUM CHRYSOGENUM VAR. CHRYS\PLEOSPORA BETAE\RHIZOPUS STOL\SAROCLADIUM STRIC\TRICHOPHYTON MENTA
     Route: 058
  6. MOLDS, RUSTS AND SMUTS, GS MOLD MIX #1 [Suspect]
     Active Substance: ALTERNARIA ALTERNATA\ ASPERGILLUS NIGER VAR. NIGER\COCHLIOBOLUS SATIVUS\CLADOSPORIUM SPHAEROSPERMUM\PENICILLIUM CHRYSOGENUM VAR. CHRYSOGENUM
     Route: 058
  7. STERILE DILUENT FOR ALLERGENIC EXTRACT (ALBUMIN (HUMAN)\PHENOL) [Suspect]
     Active Substance: ALBUMIN HUMAN\PHENOL
     Route: 058
  8. ALLERGENIC EXTRACT- MITE, DERMATOPHAGOIDES FARINAE [Suspect]
     Active Substance: DERMATOPHAGOIDES FARINAE
     Indication: RHINITIS ALLERGIC
     Route: 058
  9. STERILE DILUENT FOR ALLERGENIC EXTRACT (ALBUMIN (HUMAN)\PHENOL) [Suspect]
     Active Substance: ALBUMIN HUMAN\PHENOL
     Route: 058
  10. STANDARDIZED MITE D PTERONYSSINUS [Suspect]
     Active Substance: DERMATOPHAGOIDES PTERONYSSINUS
     Route: 058
  11. ANIMAL ALLERGENS, AP DOG HAIR AND DANDER CANIS SPP [Suspect]
     Active Substance: CANIS LUPUS FAMILIARIS DANDER\CANIS LUPUS FAMILIARIS HAIR
     Route: 058

REACTIONS (2)
  - Wheezing [Recovered/Resolved]
  - Throat irritation [Recovered/Resolved]

NARRATIVE: CASE EVENT DATE: 20170302
